FAERS Safety Report 8820372 (Version 1)
Quarter: 2012Q4

REPORT INFORMATION
  Report Type: 
  Country: NL (occurrence: NL)
  Receive Date: 20121002
  Receipt Date: 20121002
  Transmission Date: 20130627
  Serious: No
  Sender: FDA-Public Use
  Company Number: NL-JNJFOC-20120909772

PATIENT
  Age: 10 Year
  Sex: Male

DRUGS (4)
  1. FENTANYL [Suspect]
     Indication: ANALGESIC THERAPY
     Route: 062
  2. FENTANYL [Suspect]
     Indication: ANALGESIC THERAPY
     Route: 062
  3. FENTANYL [Suspect]
     Indication: ANALGESIC THERAPY
     Dosage: as required
     Route: 055
  4. MORPHINE [Suspect]
     Indication: ANALGESIC THERAPY
     Dosage: no more than 3 times a day.
     Route: 048

REACTIONS (3)
  - Drug ineffective [Unknown]
  - Inappropriate schedule of drug administration [Unknown]
  - Nausea [Recovering/Resolving]
